FAERS Safety Report 9735477 (Version 1)
Quarter: 2013Q4

REPORT INFORMATION
  Report Type: Spontaneous
  Country: US (occurrence: US)
  Receive Date: 20131206
  Receipt Date: 20131206
  Transmission Date: 20140711
  Serious: No
  Sender: FDA-Public Use
  Company Number: US-GILEAD-2009-0023284

PATIENT
  Sex: Female

DRUGS (1)
  1. LETAIRIS [Suspect]
     Indication: COR PULMONALE CHRONIC
     Route: 048
     Dates: start: 20090327

REACTIONS (1)
  - Alopecia [Not Recovered/Not Resolved]
